FAERS Safety Report 20024863 (Version 2)
Quarter: 2021Q4

REPORT INFORMATION
  Report Type: Spontaneous
  Country: US (occurrence: US)
  Receive Date: 20211102
  Receipt Date: 20211115
  Transmission Date: 20220303
  Serious: No
  Sender: FDA-Public Use
  Company Number: US-AMGEN-USASP2021164445

PATIENT
  Age: 56 Year
  Sex: Male
  Weight: 72.562 kg

DRUGS (1)
  1. REPATHA [Suspect]
     Active Substance: EVOLOCUMAB
     Indication: Hyperlipidaemia
     Dosage: UNK
     Route: 065
     Dates: start: 20210109

REACTIONS (2)
  - Drug dose omission by device [Unknown]
  - Underdose [Unknown]

NARRATIVE: CASE EVENT DATE: 20211020
